FAERS Safety Report 18189336 (Version 1)
Quarter: 2020Q3

REPORT INFORMATION
  Report Type: Spontaneous
  Country: JP (occurrence: JP)
  Receive Date: 20200824
  Receipt Date: 20200824
  Transmission Date: 20201103
  Serious: No
  Sender: FDA-Public Use
  Company Number: JP-JNJFOC-20200722947

PATIENT

DRUGS (1)
  1. DUROTEP [Suspect]
     Active Substance: FENTANYL
     Indication: PRODUCT USED FOR UNKNOWN INDICATION
     Dosage: UNKNOWN
     Route: 062

REACTIONS (3)
  - Inappropriate schedule of product administration [Unknown]
  - Product adhesion issue [Unknown]
  - Off label use [Unknown]

NARRATIVE: CASE EVENT DATE: 2020
